FAERS Safety Report 20169685 (Version 1)
Quarter: 2021Q4

REPORT INFORMATION
  Report Type: Spontaneous
  Country: AU (occurrence: None)
  Receive Date: 20211210
  Receipt Date: 20211210
  Transmission Date: 20220303
  Serious: Yes (Other)
  Sender: FDA-Public Use
  Company Number: AU-AMGEN-AUSSP2021191334

PATIENT
  Age: 67 Year
  Sex: Female

DRUGS (9)
  1. METHOTREXATE [Suspect]
     Active Substance: METHOTREXATE
     Indication: Palmoplantar pustulosis
     Route: 065
  2. ETANERCEPT [Suspect]
     Active Substance: ETANERCEPT
     Indication: Palmoplantar pustulosis
     Route: 065
  3. ETANERCEPT [Suspect]
     Active Substance: ETANERCEPT
     Indication: Psoriatic arthropathy
  4. ETANERCEPT [Suspect]
     Active Substance: ETANERCEPT
     Indication: Psoriasis
  5. APREMILAST [Suspect]
     Active Substance: APREMILAST
     Indication: Palmoplantar pustulosis
     Route: 065
  6. APREMILAST [Suspect]
     Active Substance: APREMILAST
     Indication: Psoriatic arthropathy
     Route: 065
  7. APREMILAST [Suspect]
     Active Substance: APREMILAST
     Indication: Psoriasis
     Route: 065
  8. SECUKINUMAB [Concomitant]
     Active Substance: SECUKINUMAB
     Indication: Palmoplantar pustulosis
     Route: 065
  9. ACITRETIN [Concomitant]
     Active Substance: ACITRETIN
     Route: 065

REACTIONS (5)
  - Psoriatic arthropathy [Unknown]
  - Product use in unapproved indication [Unknown]
  - Psoriasis [Unknown]
  - Palmoplantar pustulosis [Unknown]
  - Depression [Unknown]
